FAERS Safety Report 15330492 (Version 2)
Quarter: 2018Q3

REPORT INFORMATION
  Report Type: Spontaneous
  Country: KR (occurrence: KR)
  Receive Date: 20180829
  Receipt Date: 20180913
  Transmission Date: 20181010
  Serious: Yes (Other)
  Sender: FDA-Public Use
  Company Number: KR-SA-2018SA216994

PATIENT
  Age: 73 Year
  Sex: Male

DRUGS (7)
  1. GLITA [Concomitant]
     Dosage: UNK
     Route: 065
  2. LANTUS [Suspect]
     Active Substance: INSULIN GLARGINE
     Indication: DIABETES MELLITUS
     Dosage: UNK
     Route: 058
  3. SOLIQUA 100/33 [Suspect]
     Active Substance: INSULIN GLARGINE\LIXISENATIDE
     Dosage: 16 U, QD
     Dates: start: 20180806
  4. INSULIN GLARGINE [Suspect]
     Active Substance: INSULIN GLARGINE
     Dosage: 16~17 UNITS, QD
     Route: 058
  5. TOUJEO [Suspect]
     Active Substance: INSULIN GLARGINE
     Indication: DIABETES MELLITUS
     Dosage: UNKNOWN
     Route: 058
  6. SOLIQUA 100/33 [Suspect]
     Active Substance: INSULIN GLARGINE\LIXISENATIDE
     Indication: DIABETES MELLITUS
     Dosage: 16?17 UNITS/QD
     Route: 058
     Dates: start: 20180728
  7. GLADIN [Concomitant]
     Indication: HYPOGLYCAEMIA
     Dosage: 1 DF, QD
     Route: 048

REACTIONS (5)
  - Hypoglycaemia [Recovered/Resolved]
  - Retinal detachment [Not Recovered/Not Resolved]
  - Somnolence [Unknown]
  - Tooth fracture [Unknown]
  - Medication error [Unknown]

NARRATIVE: CASE EVENT DATE: 201707
